FAERS Safety Report 4426516-X (Version None)
Quarter: 2004Q3

REPORT INFORMATION
  Report Type: 
  Country: None (occurrence: None)
  Receive Date: 20040816
  Receipt Date: 20040625
  Transmission Date: 20050211
  Serious: Yes (Other)
  Sender: FDA-Public Use
  Company Number: PHNU2004DE02261

PATIENT
  Age: 74 Year
  Sex: Female
  Weight: 62 kg

DRUGS (3)
  1. ZOMETA [Suspect]
     Indication: INTERVERTEBRAL DISCITIS
     Dosage: 4 MG, QMO
     Dates: start: 20030213, end: 20040616
  2. BLOOD TRANSFUSION, AUXILIARY PRODUCTS [Concomitant]
     Indication: ANAEMIA
     Route: 065
  3. DESFERAL [Concomitant]
     Indication: HAEMOSIDEROSIS
     Dates: start: 20020409

REACTIONS (11)
  - BONE DISORDER [None]
  - HAEMORRHAGE [None]
  - HYPERPLASIA [None]
  - IMPAIRED HEALING [None]
  - MASS [None]
  - OSTEITIS [None]
  - OSTEOMYELITIS [None]
  - OSTEONECROSIS [None]
  - SEQUESTRECTOMY [None]
  - TOOTH DISORDER [None]
  - TOOTH EXTRACTION [None]
